FAERS Safety Report 7734279-5 (Version None)
Quarter: 2011Q3

REPORT INFORMATION
  Report Type: 
  Country: None (occurrence: None)
  Receive Date: 20110907
  Receipt Date: 20110901
  Transmission Date: 20111222
  Serious: Yes (Hospitalization)
  Sender: FDA-Public Use
  Company Number: BR-ABBOTT-11P-020-0851107-00

PATIENT
  Sex: Female
  Weight: 82 kg

DRUGS (11)
  1. HUMIRA [Suspect]
     Indication: CROHN'S DISEASE
     Dosage: 4, ONCE
     Route: 058
     Dates: start: 20110601
  2. ALPRAZOLAM [Concomitant]
     Indication: DEPRESSION
     Route: 048
     Dates: start: 20060101
  3. CITALOPRAM [Concomitant]
     Indication: DEPRESSION
     Route: 048
     Dates: start: 20060101
  4. RISPERIDONE [Concomitant]
     Indication: DEPRESSION
     Route: 048
  5. HUMIRA [Suspect]
     Dosage: 2, ONCE
     Route: 058
  6. HUMIRA [Suspect]
     Route: 058
  7. LAMOTRIGINE [Concomitant]
     Indication: DEPRESSION
     Route: 048
  8. TOPIRAMATE [Concomitant]
     Indication: DEPRESSION
     Route: 048
  9. AZATHIOPRINE [Concomitant]
     Indication: CROHN'S DISEASE
     Route: 048
  10. LOSARTAN POTASSIUM [Concomitant]
     Indication: HYPERTENSION
     Route: 048
  11. INSULIN [Concomitant]
     Indication: DIABETES MELLITUS
     Dosage: 4 TIMES PER DAY
     Route: 058

REACTIONS (1)
  - NECROSIS [None]
